FAERS Safety Report 8367843-3 (Version None)
Quarter: 2012Q2

REPORT INFORMATION
  Report Type: 
  Country: None (occurrence: None)
  Receive Date: 20120517
  Receipt Date: 20120510
  Transmission Date: 20120825
  Serious: Yes (Other)
  Sender: FDA-Public Use
  Company Number: US-US-EMD SERONO, INC.-7132332

PATIENT
  Sex: Female

DRUGS (2)
  1. VERAPAMIL [Concomitant]
     Indication: MIGRAINE
  2. REBIF [Suspect]
     Indication: PRODUCT USED FOR UNKNOWN INDICATION
     Route: 058
     Dates: start: 20090318

REACTIONS (4)
  - MIGRAINE [None]
  - EAR INFECTION [None]
  - STAPHYLOCOCCAL INFECTION [None]
  - EYE INFECTION [None]
